FAERS Safety Report 8565553-0 (Version None)
Quarter: 2012Q3

REPORT INFORMATION
  Report Type: 
  Country: None (occurrence: None)
  Receive Date: 20120724
  Receipt Date: 20120716
  Transmission Date: 20120928
  Serious: Yes (Death, Other)
  Sender: FDA-Public Use
  Company Number: GER/UKI/11/0021048

PATIENT
  Age: 62 Year
  Sex: Male
  Weight: 59 kg

DRUGS (7)
  1. BIVALIRUDIN [Suspect]
     Indication: PRODUCT USED FOR UNKNOWN INDICATION
     Dosage: 105 MG, 1 IN 1 HR, INTRAVENOUS
     Route: 042
     Dates: start: 20110830, end: 20110830
  2. ASPIRIN [Suspect]
     Indication: ACUTE CORONARY SYNDROME
     Dosage: 75 MG, 1 IN 1 D, ORAL
     Route: 048
     Dates: start: 20110826, end: 20110830
  3. ENOXAPARIN SODIUM [Suspect]
     Indication: ACUTE CORONARY SYNDROME
     Dosage: 60 MG, 2 IN 1 D, SUBCUTANEOUS
     Route: 058
     Dates: start: 20110826, end: 20110830
  4. PRASUGREL (PRASUGREL) [Suspect]
     Indication: PRODUCT USED FOR UNKNOWN INDICATION
     Dosage: 600 MG, ORAL
     Route: 048
     Dates: start: 20110830, end: 20110830
  5. BECLOMETHASONE DIPROPIONATE [Concomitant]
  6. ALBUTEROL SULFATE [Concomitant]
  7. CLOPIDOGREL [Suspect]
     Indication: ACUTE CORONARY SYNDROME
     Dosage: 75 MG, 1 IN 1 D. ORAL
     Route: 048
     Dates: start: 20110826, end: 20110830

REACTIONS (6)
  - BRAIN DEATH [None]
  - LOSS OF CONSCIOUSNESS [None]
  - AGITATION [None]
  - PUPIL FIXED [None]
  - HAEMORRHAGE INTRACRANIAL [None]
  - BRAIN INJURY [None]
